FAERS Safety Report 14125453 (Version 1)
Quarter: 2017Q4

REPORT INFORMATION
  Report Type: Spontaneous
  Country: RU (occurrence: RU)
  Receive Date: 20171025
  Receipt Date: 20171025
  Transmission Date: 20180321
  Serious: Yes (Hospitalization)
  Sender: FDA-Public Use
  Company Number: RU-ASTRAZENECA-2017SF07812

PATIENT
  Age: 57 Year
  Sex: Male
  Weight: 65 kg

DRUGS (4)
  1. THROMBO ASS [Concomitant]
     Active Substance: ASPIRIN
  2. BRILINTA [Suspect]
     Active Substance: TICAGRELOR
     Indication: ANGINA UNSTABLE
     Route: 048
     Dates: start: 201702
  3. ATORIS [Concomitant]
     Active Substance: ATORVASTATIN CALCIUM
  4. PERINEVA [Concomitant]
     Active Substance: PERINDOPRIL ERBUMINE

REACTIONS (3)
  - Vascular stent occlusion [Unknown]
  - Angina unstable [Unknown]
  - Blood pressure increased [Recovered/Resolved]

NARRATIVE: CASE EVENT DATE: 201702
